FAERS Safety Report 15060027 (Version 1)
Quarter: 2018Q2

REPORT INFORMATION
  Report Type: Report from Study
  Country: US (occurrence: US)
  Receive Date: 20180625
  Receipt Date: 20180625
  Transmission Date: 20180711
  Serious: Yes (Hospitalization)
  Sender: FDA-Public Use
  Company Number: US-GILEAD-2018-0346262

PATIENT
  Age: 15 Year
  Sex: Female

DRUGS (1)
  1. AZTREONAM LYSINE [Suspect]
     Active Substance: AZTREONAM LYSINE
     Indication: PRODUCT USED FOR UNKNOWN INDICATION
     Dosage: UNK, TID, EVERY OTHER MONTH
     Route: 055
     Dates: start: 20121002

REACTIONS (2)
  - Lung disorder [Not Recovered/Not Resolved]
  - Carbon dioxide abnormal [Not Recovered/Not Resolved]

NARRATIVE: CASE EVENT DATE: 20180528
